FAERS Safety Report 14948084 (Version 3)
Quarter: 2018Q3

REPORT INFORMATION
  Report Type: Report from Study
  Country: MY (occurrence: MY)
  Receive Date: 20180529
  Receipt Date: 20180904
  Transmission Date: 20181010
  Serious: Yes (Other)
  Sender: FDA-Public Use
  Company Number: PHHY2018MY048298

PATIENT
  Age: 39 Year
  Sex: Female

DRUGS (6)
  1. DIFFLAM [Concomitant]
     Active Substance: BENZYDAMINE HYDROCHLORIDE
     Indication: RENAL CELL CARCINOMA
     Dosage: 1 OT, UNK
     Route: 050
     Dates: start: 20180222
  2. PARACETAMOL [Concomitant]
     Active Substance: ACETAMINOPHEN
     Indication: PRODUCT USED FOR UNKNOWN INDICATION
     Dosage: 1 OT, UNK
     Route: 048
     Dates: start: 20180413
  3. TRAMAL [Concomitant]
     Active Substance: TRAMADOL
     Indication: PRODUCT USED FOR UNKNOWN INDICATION
     Dosage: 50 OT, UNK
     Route: 048
     Dates: start: 20180313, end: 20180413
  4. NEUROBION [Concomitant]
     Active Substance: CYANOCOBALAMIN\PYRIDOXINE\THIAMINE
     Indication: RENAL CELL CARCINOMA
     Dosage: 1 OT, UNK
     Route: 048
     Dates: start: 20180222
  5. VOTRIENT [Suspect]
     Active Substance: PAZOPANIB HYDROCHLORIDE
     Indication: RENAL CELL CARCINOMA
     Dosage: 400 OT, UNK
     Route: 048
     Dates: start: 20180207, end: 20180222
  6. GLYCERIN. [Concomitant]
     Active Substance: GLYCERIN
     Indication: RENAL CELL CARCINOMA
     Dosage: 1 OT, UNK
     Route: 050
     Dates: start: 20180222

REACTIONS (3)
  - Stomatitis [Not Recovered/Not Resolved]
  - Neuropathy peripheral [Recovered/Resolved]
  - Flank pain [Unknown]

NARRATIVE: CASE EVENT DATE: 20180211
